FAERS Safety Report 5427048-2 (Version None)
Quarter: 2007Q3

REPORT INFORMATION
  Report Type: 
  Country: None (occurrence: None)
  Receive Date: 20070824
  Receipt Date: 20070824
  Transmission Date: 20080115
  Serious: Yes (Disabling)
  Sender: FDA-Public Use
  Company Number: None

PATIENT
  Age: 60 Year
  Sex: Female

DRUGS (3)
  1. CISPLATIN [Suspect]
     Indication: LARYNGEAL CANCER
     Dosage: 100MG/M2 IV  OTO
     Route: 042
     Dates: start: 20070507
  2. CISPLATIN [Suspect]
     Indication: SQUAMOUS CELL CARCINOMA
     Dosage: 100MG/M2 IV  OTO
     Route: 042
     Dates: start: 20070507
  3. XRT [Concomitant]

REACTIONS (3)
  - DEAFNESS [None]
  - HYPOACUSIS [None]
  - TINNITUS [None]
